FAERS Safety Report 24890156 (Version 1)
Quarter: 2025Q1

REPORT INFORMATION
  Report Type: Spontaneous
  Country: CN (occurrence: CN)
  Receive Date: 20250127
  Receipt Date: 20250127
  Transmission Date: 20250409
  Serious: Yes (Other)
  Sender: PFIZER
  Company Number: CN-PFIZER INC-PV202500007403

PATIENT
  Age: 59 Year
  Sex: Male

DRUGS (9)
  1. CYTARABINE [Suspect]
     Active Substance: CYTARABINE
     Indication: Acute myeloid leukaemia
     Dosage: 150 MG, Q12 H D1-7
     Dates: start: 20230417, end: 20230423
  2. CYTARABINE [Suspect]
     Active Substance: CYTARABINE
     Indication: Chemotherapy
     Dates: start: 20230520, end: 20230523
  3. CYTARABINE [Suspect]
     Active Substance: CYTARABINE
     Dates: start: 20230621, end: 20230623
  4. CYTARABINE [Suspect]
     Active Substance: CYTARABINE
     Dates: start: 20230722, end: 20230724
  5. CYTARABINE [Suspect]
     Active Substance: CYTARABINE
     Dates: start: 20230825, end: 20230827
  6. OMACETAXINE MEPESUCCINATE [Suspect]
     Active Substance: OMACETAXINE MEPESUCCINATE
     Indication: Acute myeloid leukaemia
     Dates: start: 20230417, end: 20230423
  7. OMACETAXINE MEPESUCCINATE [Suspect]
     Active Substance: OMACETAXINE MEPESUCCINATE
     Indication: Chemotherapy
  8. ACLARUBICIN [Suspect]
     Active Substance: ACLARUBICIN
     Indication: Acute myeloid leukaemia
     Dates: start: 20230417, end: 20230423
  9. ACLARUBICIN [Suspect]
     Active Substance: ACLARUBICIN
     Indication: Chemotherapy

REACTIONS (4)
  - Myelosuppression [Recovering/Resolving]
  - Systemic candida [Recovering/Resolving]
  - Osteomyelitis fungal [Recovering/Resolving]
  - Costochondritis [Recovering/Resolving]

NARRATIVE: CASE EVENT DATE: 20230903
